FAERS Safety Report 25941588 (Version 4)
Quarter: 2025Q4

REPORT INFORMATION
  Report Type: Report from Study
  Country: EU (occurrence: EU)
  Receive Date: 20251020
  Receipt Date: 20251226
  Transmission Date: 20260117
  Serious: Yes (Hospitalization)
  Sender: AMGEN
  Company Number: EU-AMGEN-BELSP2025207430

PATIENT
  Age: 14 Year
  Sex: Female
  Weight: 34.4 kg

DRUGS (19)
  1. CYSTEAMINE BITARTRATE [Suspect]
     Active Substance: CYSTEAMINE BITARTRATE
     Indication: Cystinosis
     Dosage: 150 MILLIGRAM, BID/ CAPSULE HARD
     Route: 048
     Dates: start: 20200702, end: 20200709
  2. CYSTEAMINE BITARTRATE [Suspect]
     Active Substance: CYSTEAMINE BITARTRATE
     Dosage: 225 MILLIGRAM, BID/ CAPSULE HARD
     Route: 048
     Dates: start: 20200710, end: 20200717
  3. CYSTEAMINE BITARTRATE [Suspect]
     Active Substance: CYSTEAMINE BITARTRATE
     Dosage: 300 MILLIGRAM, BID
     Route: 048
     Dates: start: 20200718, end: 20200725
  4. CYSTEAMINE BITARTRATE [Suspect]
     Active Substance: CYSTEAMINE BITARTRATE
     Dosage: 375 MILLIGRAM, BID (CAPSULE HARD)
     Route: 048
     Dates: start: 20200726, end: 20200802
  5. CYSTEAMINE BITARTRATE [Suspect]
     Active Substance: CYSTEAMINE BITARTRATE
     Dosage: 450 MILLIGRAM, BID/ CAPSULE HARD
     Route: 048
     Dates: start: 20200803, end: 20200810
  6. CYSTEAMINE BITARTRATE [Suspect]
     Active Substance: CYSTEAMINE BITARTRATE
     Dosage: 525 MILLIGRAM, BID/ CAPSULE HARD
     Route: 048
     Dates: start: 20200811, end: 20200818
  7. CYSTEAMINE BITARTRATE [Suspect]
     Active Substance: CYSTEAMINE BITARTRATE
     Dosage: 600 MILLIGRAM, BID/ CAPSULE HARD
     Route: 048
     Dates: start: 20200819, end: 20200826
  8. CYSTEAMINE BITARTRATE [Suspect]
     Active Substance: CYSTEAMINE BITARTRATE
     Dosage: 675 MILLIGRAM, BID/ CAPSULE HARD
     Route: 048
     Dates: start: 20200828, end: 20210331
  9. CYSTEAMINE BITARTRATE [Suspect]
     Active Substance: CYSTEAMINE BITARTRATE
     Dosage: 750 MILLIGRAM, BID/ CAPSULE HARD
     Route: 048
     Dates: start: 20210401, end: 20230329
  10. CYSTEAMINE BITARTRATE [Suspect]
     Active Substance: CYSTEAMINE BITARTRATE
     Dosage: 825 MILLIGRAM, BID/ CAPSULE HARD
     Route: 048
     Dates: start: 20230330, end: 20231025
  11. CYSTEAMINE BITARTRATE [Suspect]
     Active Substance: CYSTEAMINE BITARTRATE
     Dosage: 900 MILLIGRAM, BID/ CAPSULE HARD
     Route: 048
     Dates: start: 20231026
  12. UNSPECIFIED INGREDIENT [Concomitant]
     Active Substance: UNSPECIFIED INGREDIENT
     Indication: Cystinosis
     Dosage: 6 MILLILITER, QID
     Dates: start: 2019
  13. INDOMETHACIN [Concomitant]
     Active Substance: INDOMETHACIN
     Indication: Prophylaxis
     Dosage: 8 MILLIGRAM, BID
     Dates: start: 2019
  14. POTASSIUM CITRATE [Concomitant]
     Active Substance: POTASSIUM CITRATE
     Indication: Cystinosis
     Dosage: 3.5 GRAM, QID
     Dates: start: 202001
  15. SODIUM CITRATE [Concomitant]
     Active Substance: SODIUM CITRATE
     Indication: Cystinosis
     Dosage: 0.5 GRAM, TID
     Dates: start: 2019
  16. CYSTADROPS [Concomitant]
     Active Substance: CYSTEAMINE HYDROCHLORIDE
     Indication: Cystinosis
     Dosage: 2 DROP, QID
     Route: 048
     Dates: start: 202004
  17. CHOLECALCIFEROL [Concomitant]
     Active Substance: CHOLECALCIFEROL
     Indication: Cystinosis
     Dosage: 5 DROP, QD
     Route: 048
     Dates: start: 2019
  18. LISINOPRIL [Concomitant]
     Active Substance: LISINOPRIL
     Indication: Prophylaxis
     Dosage: 0.6 MILLIGRAM, BID
     Dates: start: 2019
  19. OMNITROPE [Concomitant]
     Active Substance: SOMATROPIN
     Indication: Cystinosis
     Dosage: 1 MILLIGRAM, QD
     Dates: start: 2016

REACTIONS (1)
  - Appendicitis [Recovered/Resolved]

NARRATIVE: CASE EVENT DATE: 20250428
